FAERS Safety Report 5792492-0 (Version None)
Quarter: 2008Q2

REPORT INFORMATION
  Report Type: 
  Country: None (occurrence: None)
  Receive Date: 20080626
  Receipt Date: 20080616
  Transmission Date: 20081010
  Serious: Yes (Death, Life-Threatening, Hospitalization)
  Sender: FDA-Public Use
  Company Number: AU-PFIZER INC-2006124937

PATIENT
  Sex: Male
  Weight: 58 kg

DRUGS (6)
  1. SU-011,248 [Suspect]
     Indication: RENAL CELL CARCINOMA
     Route: 048
     Dates: start: 20060603, end: 20060921
  2. ACETAMINOPHEN [Concomitant]
  3. CODEINE LINCTUS [Concomitant]
     Dates: start: 20060616
  4. MYLANTA [Concomitant]
     Dates: start: 20060804
  5. LOSEC I.V. [Concomitant]
     Dates: start: 20060925
  6. MORPHINE [Concomitant]
     Route: 058

REACTIONS (1)
  - HAEMOTHORAX [None]
